FAERS Safety Report 14899173 (Version 4)
Quarter: 2018Q3

REPORT INFORMATION
  Report Type: Spontaneous
  Country: GB (occurrence: GB)
  Receive Date: 20180516
  Receipt Date: 20180921
  Transmission Date: 20181010
  Serious: Yes (Life-Threatening, Hospitalization, Other)
  Sender: FDA-Public Use
  Company Number: GB-TEVA-2018-GB-893259

PATIENT
  Age: 67 Year
  Sex: Female

DRUGS (9)
  1. PERINDOPRIL [Concomitant]
     Active Substance: PERINDOPRIL
     Route: 065
  2. OMEPRAZOLE. [Suspect]
     Active Substance: OMEPRAZOLE
     Dosage: 2 DOSAGE FORMS DAILY;
     Route: 048
  3. ZIMOVANE [Concomitant]
     Active Substance: ZOPICLONE
     Indication: SEDATIVE THERAPY
     Dosage: 2 DOSAGE FORMS DAILY;
     Route: 065
     Dates: start: 201801
  4. SPIRONOLACTONE. [Concomitant]
     Active Substance: SPIRONOLACTONE
     Route: 065
  5. ZIMOVANE [Concomitant]
     Active Substance: ZOPICLONE
     Route: 065
  6. PROMETHAZINE [Suspect]
     Active Substance: PROMETHAZINE\PROMETHAZINE HYDROCHLORIDE
     Indication: PRODUCT SUBSTITUTION
     Route: 065
     Dates: start: 20180112, end: 20180113
  7. FUROSEMIDE. [Concomitant]
     Active Substance: FUROSEMIDE
     Indication: BLOOD PRESSURE MEASUREMENT
     Route: 065
  8. BISOPROLOL [Concomitant]
     Active Substance: BISOPROLOL
     Route: 065
  9. IVABRADINE [Concomitant]
     Active Substance: IVABRADINE
     Route: 065

REACTIONS (29)
  - Nightmare [Recovered/Resolved]
  - Hot flush [Recovered/Resolved]
  - Confusional state [Recovered/Resolved]
  - Tremor [Unknown]
  - Malaise [Recovered/Resolved]
  - Eye disorder [Recovering/Resolving]
  - Psychiatric symptom [Recovering/Resolving]
  - Dry mouth [Recovered/Resolved]
  - Vision blurred [Recovered/Resolved]
  - Decreased appetite [Recovered/Resolved]
  - Fear [Recovering/Resolving]
  - Photosensitivity reaction [Recovered/Resolved]
  - Cardiac disorder [Recovered/Resolved]
  - Disorientation [Recovered/Resolved]
  - Syncope [Recovered/Resolved]
  - Hypoaesthesia [Unknown]
  - Heart rate increased [Unknown]
  - Memory impairment [Recovering/Resolving]
  - Heart rate increased [Recovering/Resolving]
  - Mental disorder [Recovering/Resolving]
  - Disturbance in attention [Recovering/Resolving]
  - Unevaluable event [Recovered/Resolved]
  - Dizziness [Recovered/Resolved]
  - Photosensitivity reaction [Unknown]
  - Suicidal ideation [Unknown]
  - Syncope [Unknown]
  - Restlessness [Recovered/Resolved]
  - Dysuria [Recovered/Resolved]
  - Palpitations [Recovering/Resolving]

NARRATIVE: CASE EVENT DATE: 2018
